FAERS Safety Report 4822658-5 (Version None)
Quarter: 2005Q4

REPORT INFORMATION
  Report Type: 
  Country: None (occurrence: None)
  Receive Date: 20051107
  Receipt Date: 20051107
  Transmission Date: 20060501
  Serious: Yes (Hospitalization, Other)
  Sender: FDA-Public Use
  Company Number: None

PATIENT
  Sex: Male
  Weight: 91 kg

DRUGS (6)
  1. RITUXAN [Suspect]
     Indication: DIFFUSE LARGE B-CELL LYMPHOMA
     Dosage: SEE IMAGE
     Route: 042
     Dates: start: 20051029
  2. CYTOXAN [Suspect]
     Dosage: SEE IMAGE
     Route: 042
     Dates: start: 20051029
  3. DOXIL [Suspect]
     Dosage: SEE IMAGE
     Route: 042
     Dates: start: 20051030, end: 20051030
  4. DOXIL [Suspect]
     Dosage: SEE IMAGE
     Route: 042
     Dates: start: 20051029
  5. VINCRISTINE [Suspect]
     Dosage: SEE IMAGE
     Route: 042
     Dates: start: 20051029
  6. PREDNISONE [Suspect]
     Dosage: SEE IMAGE
     Route: 048
     Dates: start: 20051029

REACTIONS (2)
  - ATRIAL FIBRILLATION [None]
  - HEART RATE IRREGULAR [None]
